FAERS Safety Report 11471449 (Version 1)
Quarter: 2015Q3

REPORT INFORMATION
  Report Type: Spontaneous
  Country: US (occurrence: US)
  Receive Date: 20150908
  Receipt Date: 20150908
  Transmission Date: 20151125
  Serious: Yes (Other)
  Sender: FDA-Public Use
  Company Number: US-AKORN PHARMACEUTICALS-2015AKN00485

PATIENT
  Age: 47 Year
  Sex: Male

DRUGS (12)
  1. RITONAVIR. [Suspect]
     Active Substance: RITONAVIR
     Indication: HIV INFECTION
  2. RANITIDINE [Concomitant]
     Active Substance: RANITIDINE\RANITIDINE HYDROCHLORIDE
  3. EZETIMIBE. [Concomitant]
     Active Substance: EZETIMIBE
  4. OXYCODONE [Concomitant]
     Active Substance: OXYCODONE
  5. TRIAMCINOLONE ACETONIDE. [Suspect]
     Active Substance: TRIAMCINOLONE ACETONIDE
     Indication: CERVICAL RADICULOPATHY
     Dosage: 480 MG, UNK
     Route: 008
  6. TENOFOVIR/EMTRICITABINE [Concomitant]
     Active Substance: EMTRICITABINE\TENOFOVIR
  7. ISOSORBIDE MONONITRATE. [Concomitant]
     Active Substance: ISOSORBIDE MONONITRATE
  8. METHOCARBAMOL. [Concomitant]
     Active Substance: METHOCARBAMOL
  9. METOPROLOL [Concomitant]
     Active Substance: METOPROLOL
  10. ATAZANAVIR [Concomitant]
     Active Substance: ATAZANAVIR
  11. ATORVASTATIN [Concomitant]
     Active Substance: ATORVASTATIN
  12. ASPIRIN. [Concomitant]
     Active Substance: ASPIRIN

REACTIONS (3)
  - Adrenal insufficiency [Recovered/Resolved]
  - Cushing^s syndrome [Recovered/Resolved]
  - Drug interaction [Recovered/Resolved]
